FAERS Safety Report 11648365 (Version 1)
Quarter: 2015Q4

REPORT INFORMATION
  Report Type: Spontaneous
  Country: GR (occurrence: GR)
  Receive Date: 20151021
  Receipt Date: 20151021
  Transmission Date: 20160304
  Serious: Yes (Other)
  Sender: FDA-Public Use
  Company Number: GR-WARNER CHILCOTT, LLC-1043232

PATIENT
  Age: 59 Year
  Sex: Female

DRUGS (3)
  1. ACTONEL [Suspect]
     Active Substance: RISEDRONATE SODIUM
     Indication: OSTEOPOROSIS
     Route: 048
     Dates: start: 20150704, end: 20150917
  2. ONE ALPHA [Concomitant]
     Active Substance: ALFACALCIDOL
  3. CALCIUM [Concomitant]
     Active Substance: CALCIUM

REACTIONS (5)
  - Vitreous detachment [None]
  - Visual impairment [None]
  - Eye haemorrhage [None]
  - Eye inflammation [None]
  - Abnormal sensation in eye [None]
